FAERS Safety Report 17864355 (Version 4)
Quarter: 2020Q4

REPORT INFORMATION
  Report Type: Spontaneous
  Country: US (occurrence: US)
  Receive Date: 20200605
  Receipt Date: 20201027
  Transmission Date: 20210113
  Serious: No
  Sender: FDA-Public Use
  Company Number: US-BEH-2020118016

PATIENT
  Sex: Female
  Weight: 60.77 kg

DRUGS (24)
  1. LOSARTAN POTASSIUM. [Concomitant]
     Active Substance: LOSARTAN POTASSIUM
     Dosage: 50 MILLIGRAM
  2. VITAMIN D [VITAMIN D NOS] [Concomitant]
     Active Substance: VITAMIN D NOS
  3. ZEMAIRA [Suspect]
     Active Substance: .ALPHA.1-PROTEINASE INHIBITOR HUMAN
     Indication: HUMORAL IMMUNE DEFECT
     Dosage: 3868 MILLIGRAM (4X 967MG), QW
     Route: 042
  4. ZEMAIRA [Suspect]
     Active Substance: .ALPHA.1-PROTEINASE INHIBITOR HUMAN
     Dosage: 60 MILLIGRAM/KILOGRAM (DOSE: 3696), WEEKLY NOT TO EXCEED
     Route: 042
     Dates: start: 202001
  5. ATORVASTATIN [Concomitant]
     Active Substance: ATORVASTATIN
  6. INTRAROSA [Concomitant]
     Active Substance: PRASTERONE
     Dosage: 6.5 MILLIGRAM
  7. ZEMAIRA [Suspect]
     Active Substance: .ALPHA.1-PROTEINASE INHIBITOR HUMAN
     Dosage: (DOSE: 3696), WEEKLY NOT TO EXCEED
     Route: 042
     Dates: start: 202004
  8. ZEMAIRA [Suspect]
     Active Substance: .ALPHA.1-PROTEINASE INHIBITOR HUMAN
     Dosage: (DOSE: 3696), WEEKLY NOT TO EXCEED
     Route: 042
     Dates: start: 202004
  9. ZEMAIRA [Suspect]
     Active Substance: .ALPHA.1-PROTEINASE INHIBITOR HUMAN
     Dosage: (DOSE: 3696), WEEKLY NOT TO EXCEED
     Route: 042
  10. NASACORT ALLERGO [Concomitant]
  11. PRIVIGEN [Suspect]
     Active Substance: HUMAN IMMUNOGLOBULIN G
     Dosage: 25 GRAM, QMT, EVERY 28 DAYS
     Route: 042
     Dates: start: 202004
  12. PRIVIGEN [Suspect]
     Active Substance: HUMAN IMMUNOGLOBULIN G
     Dosage: UNK
     Route: 042
  13. ZEMAIRA [Suspect]
     Active Substance: .ALPHA.1-PROTEINASE INHIBITOR HUMAN
     Indication: HUMORAL IMMUNE DEFECT
     Dosage: 3868 MILLIGRAM (4X 967MG), QW
     Route: 042
  14. ZEMAIRA [Suspect]
     Active Substance: .ALPHA.1-PROTEINASE INHIBITOR HUMAN
     Dosage: (DOSE: 3696), WEEKLY NOT TO EXCEED
     Route: 042
  15. PRIVIGEN [Suspect]
     Active Substance: HUMAN IMMUNOGLOBULIN G
     Indication: HUMORAL IMMUNE DEFECT
     Dosage: 25 GRAM, QMT, EVERY 28 DAYS
     Route: 042
  16. ZEMAIRA [Suspect]
     Active Substance: .ALPHA.1-PROTEINASE INHIBITOR HUMAN
     Dosage: 60 MILLIGRAM/KILOGRAM (DOSE: 3696), WEEKLY NOT TO EXCEED
     Route: 042
     Dates: start: 202001
  17. CARVEDILOL. [Concomitant]
     Active Substance: CARVEDILOL
     Dosage: 12.5 MILLIGRAM
  18. SINGULAIR [Concomitant]
     Active Substance: MONTELUKAST SODIUM
  19. TROKENDI [Concomitant]
     Active Substance: TOPIRAMATE
     Dosage: 25 MILLIGRAM
  20. MAXALT [Concomitant]
     Active Substance: RIZATRIPTAN BENZOATE
     Dosage: 10 MILLIGRAM
  21. TOPIRAMATE. [Concomitant]
     Active Substance: TOPIRAMATE
     Dosage: 25 MILLIGRAM
  22. AMLODIPINE [Concomitant]
     Active Substance: AMLODIPINE BESYLATE
     Dosage: 2.5 MILLIGRAM
  23. OLOPATADINE. [Concomitant]
     Active Substance: OLOPATADINE
  24. MECLIZINE HCL [Concomitant]
     Active Substance: MECLIZINE HYDROCHLORIDE

REACTIONS (19)
  - Back pain [Recovered/Resolved]
  - Discomfort [Recovered/Resolved]
  - Unevaluable event [Unknown]
  - Asthma [Recovered/Resolved]
  - No adverse event [Unknown]
  - Migraine [Unknown]
  - Middle insomnia [Unknown]
  - Sinusitis [Recovered/Resolved]
  - Chest pain [Recovered/Resolved]
  - Cough [Unknown]
  - Pain [Recovered/Resolved]
  - Asthma [Unknown]
  - Cough [Recovered/Resolved]
  - Oropharyngeal pain [Recovered/Resolved]
  - Product use in unapproved indication [Unknown]
  - Poor quality sleep [Recovered/Resolved]
  - Back pain [Unknown]
  - Sinusitis [Unknown]
  - Nausea [Unknown]

NARRATIVE: CASE EVENT DATE: 2020
